FAERS Safety Report 25976817 (Version 3)
Quarter: 2025Q4

REPORT INFORMATION
  Report Type: Report from Study
  Country: EU (occurrence: EU)
  Receive Date: 20251029
  Receipt Date: 20251112
  Transmission Date: 20260118
  Serious: Yes (Death, Hospitalization)
  Sender: ABBVIE
  Company Number: EU-ABBVIE-6496876

PATIENT
  Age: 83 Year
  Sex: Female

DRUGS (2)
  1. FOSCARBIDOPA\FOSLEVODOPA [Suspect]
     Active Substance: FOSCARBIDOPA\FOSLEVODOPA
     Indication: Product used for unknown indication
     Dosage: FLOW RATE 1: 0.28ML/H(FLOW BASAL)?FLOW RATE 2: 0.30ML/H(HIGH FLOW)?FLOW RATE 3: 0.26ML/H(LOW FLOW...
     Route: 058
     Dates: start: 20250915
  2. FOSCARBIDOPA\FOSLEVODOPA [Suspect]
     Active Substance: FOSCARBIDOPA\FOSLEVODOPA
     Dosage: FLOW RATE 1 (ML/H): 0.30ML/H, DURATION (H): BASE,FROM 7AM TO 19PM?FLOW RATE 2 (ML/H): 0.20ML/H, D...
     Route: 058

REACTIONS (4)
  - Death [Fatal]
  - General physical health deterioration [Not Recovered/Not Resolved]
  - Freezing phenomenon [Not Recovered/Not Resolved]
  - Palliative care [Not Recovered/Not Resolved]

NARRATIVE: CASE EVENT DATE: 20250101
